FAERS Safety Report 23917705 (Version 1)
Quarter: 2024Q2

REPORT INFORMATION
  Report Type: Other
  Country: US (occurrence: US)
  Receive Date: 20240530
  Receipt Date: 20240530
  Transmission Date: 20240716
  Serious: Yes (Life-Threatening, Hospitalization, Other)
  Sender: FDA-Public Use
  Company Number: None

PATIENT
  Age: 52 Year
  Sex: Female

DRUGS (1)
  1. VENLAFAXINE [Suspect]
     Active Substance: VENLAFAXINE HYDROCHLORIDE
     Dosage: VENLAFAXINE OVERDOSE OF APPROXIMATELY 30 TABLETS

REACTIONS (7)
  - Seizure like phenomena [Recovering/Resolving]
  - Electrocardiogram QT prolonged [Recovering/Resolving]
  - Intentional overdose [Recovering/Resolving]
  - Acute respiratory distress syndrome [Recovering/Resolving]
  - Serotonin syndrome [Recovering/Resolving]
  - Respiratory acidosis [Recovering/Resolving]
  - Metabolic acidosis [Recovering/Resolving]
